FAERS Safety Report 5034222-6 (Version None)
Quarter: 2006Q2

REPORT INFORMATION
  Report Type: 
  Country: None (occurrence: None)
  Receive Date: 20060626
  Receipt Date: 20060616
  Transmission Date: 20061013
  Serious: Yes (Other)
  Sender: FDA-Public Use
  Company Number: FR-GLAXOSMITHKLINE-B0428627A

PATIENT
  Age: 60 Year
  Sex: Female

DRUGS (2)
  1. AVANDIA [Suspect]
     Route: 048
     Dates: start: 20060606, end: 20060601
  2. DIAMICRON [Concomitant]
     Route: 065
     Dates: end: 20060601

REACTIONS (2)
  - ANGIONEUROTIC OEDEMA [None]
  - PRURITUS [None]
